FAERS Safety Report 8511977-7 (Version None)
Quarter: 2012Q2

REPORT INFORMATION
  Report Type: 
  Country: None (occurrence: None)
  Receive Date: 20120405
  Receipt Date: 20080814
  Transmission Date: 20120825
  Serious: Yes (Other)
  Sender: FDA-Public Use
  Company Number: PHEH2008US06811

PATIENT
  Age: 80 Year
  Sex: Female

DRUGS (6)
  1. SULFASALAZINE [Concomitant]
  2. LEVOXYL [Concomitant]
  3. ACIPHEX [Concomitant]
  4. AMLODIPINE W/HYDROCHLOTHIAZIDE (AMLODIPINE, HYDROCHLOROTHIAZIDE) [Concomitant]
  5. ATENOLOL [Concomitant]
  6. RECLAST [Suspect]
     Indication: OSTEOPOROSIS
     Dosage: INTRAVENOUS
     Route: 042
     Dates: start: 20080716

REACTIONS (3)
  - MYALGIA [None]
  - DIARRHOEA [None]
  - PYREXIA [None]
